FAERS Safety Report 25062806 (Version 1)
Quarter: 2025Q1

REPORT INFORMATION
  Report Type: Spontaneous
  Country: US (occurrence: None)
  Receive Date: 20250310
  Receipt Date: 20250310
  Transmission Date: 20250409
  Serious: Yes (Hospitalization)
  Sender: FDA-CTU
  Company Number: None

PATIENT
  Sex: Female

DRUGS (2)
  1. CAPECITABINE [Suspect]
     Active Substance: CAPECITABINE
     Indication: Breast cancer female
     Dosage: 150MG  TWICE DAILY ORAL ?
     Route: 048
     Dates: start: 202412
  2. CAPECITABINE [Suspect]
     Active Substance: CAPECITABINE
     Indication: Breast cancer female
     Dosage: 2000 TWICE DAILY ORAL
     Route: 048
     Dates: start: 202412

REACTIONS (6)
  - Skin fissures [None]
  - Erythema [None]
  - Skin irritation [None]
  - Pain in extremity [None]
  - Pain in extremity [None]
  - Gait disturbance [None]
